FAERS Safety Report 13065170 (Version 5)
Quarter: 2017Q4

REPORT INFORMATION
  Report Type: Report from Study
  Country: JP (occurrence: JP)
  Receive Date: 20161227
  Receipt Date: 20171003
  Transmission Date: 20180320
  Serious: Yes (Hospitalization, Disabling, Other)
  Sender: FDA-Public Use
  Company Number: JP-BRISTOL-MYERS SQUIBB COMPANY-BMS-2016-109976

PATIENT
  Age: 87 Year
  Sex: Female
  Weight: 60 kg

DRUGS (7)
  1. APIXABAN [Suspect]
     Active Substance: APIXABAN
     Indication: DEEP VEIN THROMBOSIS
     Dosage: 2.5 MG, BID
     Route: 048
     Dates: start: 20161112, end: 20170505
  2. FEBURIC [Concomitant]
     Active Substance: FEBUXOSTAT
     Indication: PRODUCT USED FOR UNKNOWN INDICATION
     Dosage: 20 MG, QD
     Route: 048
     Dates: end: 20161110
  3. ZINC OXIDE. [Concomitant]
     Active Substance: ZINC OXIDE
     Indication: PRODUCT USED FOR UNKNOWN INDICATION
     Dosage: 3 G, QD
     Route: 061
     Dates: start: 20161118, end: 20161214
  4. DIOVAN [Concomitant]
     Active Substance: VALSARTAN
     Indication: PRODUCT USED FOR UNKNOWN INDICATION
     Dosage: 80 MG, QD
     Route: 048
  5. CO-DIOVAN [Concomitant]
     Active Substance: HYDROCHLOROTHIAZIDE\VALSARTAN
     Indication: PRODUCT USED FOR UNKNOWN INDICATION
     Dosage: 1 DF, QD (80/12.5MG)
     Route: 048
     Dates: end: 20161110
  6. APIXABAN [Suspect]
     Active Substance: APIXABAN
     Indication: PULMONARY EMBOLISM
     Dosage: 10 MG, BID
     Route: 048
     Dates: start: 20161105, end: 20161111
  7. DOXAZOSIN [Concomitant]
     Active Substance: DOXAZOSIN\DOXAZOSIN MESYLATE
     Indication: PRODUCT USED FOR UNKNOWN INDICATION
     Dosage: 1 MG, QD
     Route: 048
     Dates: start: 20170501

REACTIONS (7)
  - Femoral neck fracture [Recovering/Resolving]
  - Bone prosthesis insertion [Unknown]
  - Aspiration joint [Unknown]
  - Arthritis [Recovered/Resolved]
  - Cellulitis [Recovered/Resolved]
  - Prescribed underdose [Unknown]
  - Fall [Unknown]

NARRATIVE: CASE EVENT DATE: 20161105
